FAERS Safety Report 12530648 (Version 2)
Quarter: 2016Q3

REPORT INFORMATION
  Report Type: Spontaneous
  Country: IT (occurrence: IT)
  Receive Date: 20160706
  Receipt Date: 20160727
  Transmission Date: 20161109
  Serious: Yes (Hospitalization, Other)
  Sender: FDA-Public Use
  Company Number: IT-CELGENEUS-ITA-2016065259

PATIENT
  Age: 13 Year
  Sex: Female

DRUGS (1)
  1. THALIDOMIDE [Suspect]
     Active Substance: THALIDOMIDE
     Indication: COLITIS ULCERATIVE
     Route: 048

REACTIONS (1)
  - Stoma complication [Recovered/Resolved]

NARRATIVE: CASE EVENT DATE: 20120120
